FAERS Safety Report 8416589-1 (Version None)
Quarter: 2012Q2

REPORT INFORMATION
  Report Type: 
  Country: None (occurrence: None)
  Receive Date: 20120323
  Receipt Date: 20110309
  Transmission Date: 20120825
  Serious: Yes (Disabling)
  Sender: FDA-Public Use
  Company Number: 163-21880-11021926

PATIENT
  Age: 73 Year
  Sex: Male

DRUGS (23)
  1. MECLIZINE HCL (MECLIZINE HYDROCHLORIDE) [Concomitant]
  2. METFFORMIN HYDROCHLORIDE [Concomitant]
  3. ZOLEDRONIC ACID [Concomitant]
  4. REVLIMID [Suspect]
     Indication: MULTIPLE MYELOMA
     Dosage: 10 MG, 1 IN 1 D, PO ; 5 MG, DAILY FOR 14 DAYS, PO
     Route: 048
     Dates: start: 20110214
  5. REVLIMID [Suspect]
     Indication: MULTIPLE MYELOMA
     Dosage: 10 MG, 1 IN 1 D, PO ; 5 MG, DAILY FOR 14 DAYS, PO
     Route: 048
     Dates: start: 20101202, end: 20110131
  6. PALONOSETRON (PALONOSETRON) [Concomitant]
  7. TAMSULOSIN HCL (TAMSULOSIN HYDROCHLORIDE) [Concomitant]
  8. GRANISETRON [Concomitant]
  9. DALTEPARIN SODIUM [Concomitant]
  10. CARVEDILOL [Concomitant]
  11. HYDROCODONE/ACETAMINOPHEN (REMEDEINE) [Concomitant]
  12. BORTEZOMIB [Concomitant]
  13. FENOFIBRATE [Concomitant]
  14. TORSEMIDE [Concomitant]
  15. PROCHLORPERAZINE MALEATE (PROCHLORPERAZINE MALEATE) [Concomitant]
  16. DEXAMETHASONE [Concomitant]
  17. VALSARTAN [Concomitant]
  18. SERTRALINE HCL (SERTRALINE HYDROCHLORIDE) [Concomitant]
  19. COUMADIN [Concomitant]
  20. NORMAL SALINE (NORMAL CHLORIDE) [Concomitant]
  21. ASPIRIN [Concomitant]
  22. FAMOTIDINE [Concomitant]
  23. WARFARIN SODIUM [Concomitant]

REACTIONS (1)
  - PLATELET COUNT DECREASED [None]
